APPROVED DRUG PRODUCT: SULFISOXAZOLE DIOLAMINE
Active Ingredient: SULFISOXAZOLE DIOLAMINE
Strength: EQ 4% BASE
Dosage Form/Route: SOLUTION/DROPS;OPHTHALMIC
Application: A084148 | Product #001
Applicant: SOLA BARNES HIND
Approved: Approved Prior to Jan 1, 1982 | RLD: No | RS: No | Type: DISCN